FAERS Safety Report 4493535-7 (Version None)
Quarter: 2004Q4

REPORT INFORMATION
  Report Type: 
  Country: None (occurrence: None)
  Receive Date: 20041102
  Receipt Date: 20041102
  Transmission Date: 20050328
  Serious: No
  Sender: FDA-Public Use
  Company Number: None

PATIENT
  Age: 61 Year
  Sex: Male
  Weight: 175 kg

DRUGS (10)
  1. ISOVUE-370 [Suspect]
     Indication: ANGIOPLASTY
     Dosage: 250ML   ONCE  INTRAVENOU
     Route: 042
     Dates: start: 20040629, end: 20040629
  2. KETOROLAC   30MG/1ML [Suspect]
     Indication: PAIN
     Dosage: 30MG   ONCE   INTRAVENOU
     Route: 042
     Dates: start: 20030630, end: 20040630
  3. CELECOXIB [Concomitant]
  4. LISINOPRIL AND HYDROCHLOROTHIAZIDE [Concomitant]
  5. CLOPIDOGREL BISULFATE [Concomitant]
  6. ATENOLOL [Concomitant]
  7. AMARYL [Concomitant]
  8. ASPIRIN [Concomitant]
  9. FOLTX [Concomitant]
  10. ATORVASTATIN CALCIUM [Concomitant]

REACTIONS (2)
  - DIALYSIS [None]
  - RENAL FAILURE ACUTE [None]
